FAERS Safety Report 11692936 (Version 1)
Quarter: 2015Q4

REPORT INFORMATION
  Report Type: Report from Study
  Country: CA (occurrence: CA)
  Receive Date: 20151103
  Receipt Date: 20151103
  Transmission Date: 20160304
  Serious: Yes (Other)
  Sender: FDA-Public Use
  Company Number: CA-BIOGENIDEC-2015BI122099

PATIENT
  Age: 53 Year
  Sex: Female

DRUGS (2)
  1. TECFIDERA [Suspect]
     Active Substance: DIMETHYL FUMARATE
     Indication: RELAPSING-REMITTING MULTIPLE SCLEROSIS
     Route: 048
     Dates: start: 20140929, end: 20141005
  2. TECFIDERA [Suspect]
     Active Substance: DIMETHYL FUMARATE
     Indication: RELAPSING-REMITTING MULTIPLE SCLEROSIS
     Route: 048
     Dates: start: 20141006, end: 20150831

REACTIONS (4)
  - Oropharyngeal pain [Not Recovered/Not Resolved]
  - Keratoacanthoma [Recovered/Resolved]
  - Skin lesion [Not Recovered/Not Resolved]
  - Oropharyngeal candidiasis [Unknown]

NARRATIVE: CASE EVENT DATE: 20150416
